FAERS Safety Report 20014111 (Version 7)
Quarter: 2022Q1

REPORT INFORMATION
  Report Type: Report from Study
  Country: US (occurrence: US)
  Receive Date: 20211029
  Receipt Date: 20220309
  Transmission Date: 20220423
  Serious: Yes (Hospitalization, Other)
  Sender: FDA-Public Use
  Company Number: US-MALLINCKRODT-T202103455

PATIENT
  Sex: Female
  Weight: 79 kg

DRUGS (11)
  1. CORTICOTROPIN [Suspect]
     Active Substance: CORTICOTROPIN
     Indication: Rheumatoid arthritis
     Dosage: UNKNOWN
     Route: 065
     Dates: start: 20210624, end: 202107
  2. CORTICOTROPIN [Suspect]
     Active Substance: CORTICOTROPIN
     Dosage: 80 UNITS, THREE TIMES A WEEK
     Route: 058
     Dates: start: 20210721, end: 20210810
  3. CORTICOTROPIN [Suspect]
     Active Substance: CORTICOTROPIN
     Dosage: RESTARTED 80 UNITS, THREE TIMES A WEEK
     Route: 058
     Dates: start: 2021, end: 202112
  4. CORTICOTROPIN [Suspect]
     Active Substance: CORTICOTROPIN
     Dosage: 80 UNITS, THREE TIMES A WEEK
     Route: 058
     Dates: start: 202112, end: 20220125
  5. METHOTREXATE [Suspect]
     Active Substance: METHOTREXATE
     Indication: Product used for unknown indication
     Dosage: UNK
     Route: 065
  6. COVID-19 VACCINE NOS [Suspect]
     Active Substance: COVID-19 VACCINE NOS
     Indication: COVID-19 immunisation
     Dosage: UNK
     Route: 065
     Dates: start: 20210908, end: 20210908
  7. PREDNISONE [Suspect]
     Active Substance: PREDNISONE
     Indication: Product used for unknown indication
     Dosage: 10MG ALTERNATING WITH 12MG, WEANING
     Route: 048
     Dates: end: 2021
  8. PREDNISONE [Suspect]
     Active Substance: PREDNISONE
     Dosage: UNK
     Route: 065
     Dates: start: 2021
  9. PREDNISONE [Suspect]
     Active Substance: PREDNISONE
     Dosage: 20 MILLIGRAM
     Route: 065
  10. FUROSEMIDE [Suspect]
     Active Substance: FUROSEMIDE
     Indication: Swelling
     Dosage: UNK
     Route: 065
  11. RITUXAN [Concomitant]
     Active Substance: RITUXIMAB
     Indication: Product used for unknown indication
     Dosage: UNK
     Route: 065

REACTIONS (26)
  - Diabetic ketoacidosis [Unknown]
  - Pneumonia [Unknown]
  - COVID-19 [Unknown]
  - Diabetes mellitus [Not Recovered/Not Resolved]
  - Intracardiac thrombus [Unknown]
  - Immunodeficiency [Not Recovered/Not Resolved]
  - Pancreatic disorder [Unknown]
  - Weight decreased [Unknown]
  - Frequent bowel movements [Not Recovered/Not Resolved]
  - Pneumonitis [Not Recovered/Not Resolved]
  - Oxygen therapy [Not Recovered/Not Resolved]
  - Illness [Not Recovered/Not Resolved]
  - Nausea [Unknown]
  - Injury associated with device [Unknown]
  - Muscle spasms [Unknown]
  - Mobility decreased [Not Recovered/Not Resolved]
  - Retching [Unknown]
  - Dehydration [Unknown]
  - Pain [Not Recovered/Not Resolved]
  - Bone pain [Unknown]
  - Hypophagia [Not Recovered/Not Resolved]
  - Asthenia [Not Recovered/Not Resolved]
  - Swelling [Unknown]
  - Injection site haemorrhage [Not Recovered/Not Resolved]
  - Injection site extravasation [Unknown]
  - Product dose omission issue [Not Recovered/Not Resolved]

NARRATIVE: CASE EVENT DATE: 20210101
